FAERS Safety Report 6048495-4 (Version None)
Quarter: 2009Q1

REPORT INFORMATION
  Report Type: 
  Country: None (occurrence: None)
  Receive Date: 20090123
  Receipt Date: 20090119
  Transmission Date: 20090719
  Serious: Yes (Hospitalization)
  Sender: FDA-Public Use
  Company Number: B0551341A

PATIENT
  Age: 60 Year
  Sex: Female

DRUGS (6)
  1. ZOVIRAX [Suspect]
     Indication: HERPES ZOSTER
     Dosage: 600MG PER DAY
     Route: 048
     Dates: start: 20081202, end: 20081203
  2. MUCOSTA [Concomitant]
     Dosage: 300MG PER DAY
     Route: 048
  3. ASPIRIN [Concomitant]
     Dosage: 100MG PER DAY
     Route: 048
  4. CALTAN [Concomitant]
     Dosage: 3000MG PER DAY
     Route: 048
  5. NOVOLIN [Concomitant]
     Route: 058
  6. CLINORIL [Concomitant]
     Dosage: 300MG PER DAY
     Route: 048
     Dates: start: 20081201

REACTIONS (5)
  - ASTHENIA [None]
  - FEELING ABNORMAL [None]
  - HALLUCINATION [None]
  - HALLUCINATION, AUDITORY [None]
  - NERVOUS SYSTEM DISORDER [None]
